FAERS Safety Report 15291158 (Version 1)
Quarter: 2018Q3

REPORT INFORMATION
  Report Type: Spontaneous
  Country: US (occurrence: US)
  Receive Date: 20180817
  Receipt Date: 20180817
  Transmission Date: 20181010
  Serious: Yes (Other)
  Sender: FDA-Public Use
  Company Number: US-SA-2018SA223878

PATIENT
  Age: 60 Year
  Sex: Female

DRUGS (1)
  1. TAXOTERE [Suspect]
     Active Substance: DOCETAXEL
     Indication: NEOPLASM MALIGNANT
     Dosage: UNK UNK, UNK
     Route: 042
     Dates: start: 20180622

REACTIONS (3)
  - Neuropathy peripheral [Unknown]
  - Stomatitis [Unknown]
  - Myalgia [Unknown]
